FAERS Safety Report 13422938 (Version 2)
Quarter: 2017Q2

REPORT INFORMATION
  Report Type: Spontaneous
  Country: US (occurrence: US)
  Receive Date: 20170410
  Receipt Date: 20170508
  Transmission Date: 20170830
  Serious: Yes (Other)
  Sender: FDA-Public Use
  Company Number: US-BAYER-2017-065892

PATIENT
  Age: 33 Year
  Sex: Female

DRUGS (5)
  1. MESALAMINE. [Interacting]
     Active Substance: MESALAMINE
  2. DIPHENHYDRAMINE. [Concomitant]
     Active Substance: DIPHENHYDRAMINE
  3. ACETYLSALICYLIC ACID (} 100 MG) [Suspect]
     Active Substance: ASPIRIN
     Dosage: UNK
  4. IBUPROFEN. [Interacting]
     Active Substance: IBUPROFEN
     Dosage: UNK
  5. NAPROXEN SODIUM LIQUID GEL CAPSULES [Interacting]
     Active Substance: NAPROXEN SODIUM
     Dosage: UNK

REACTIONS (6)
  - Pruritus [None]
  - Angioedema [None]
  - Drug hypersensitivity [None]
  - Localised oedema [None]
  - Urticaria [None]
  - Confusional state [None]
